FAERS Safety Report 25716691 (Version 1)
Quarter: 2025Q3

REPORT INFORMATION
  Report Type: Report from Study
  Country: CA (occurrence: CA)
  Receive Date: 20250822
  Receipt Date: 20250822
  Transmission Date: 20251021
  Serious: Yes (Other)
  Sender: ABBVIE
  Company Number: CA-JNJFOC-20250530170

PATIENT
  Age: 32 Year
  Sex: Female

DRUGS (2)
  1. IMBRUVICA [Suspect]
     Active Substance: IBRUTINIB
     Indication: Mantle cell lymphoma
     Route: 048
  2. IMBRUVICA [Suspect]
     Active Substance: IBRUTINIB
     Indication: Mantle cell lymphoma
     Dosage: ON DAYS 1-19 FOR 2 CYCLES AND FOR 2 YEARS MAINTENANCE
     Route: 048
     Dates: end: 20250727

REACTIONS (2)
  - Transplant [Unknown]
  - Off label use [Unknown]
